FAERS Safety Report 13954373 (Version 1)
Quarter: 2017Q3

REPORT INFORMATION
  Report Type: Spontaneous
  Country: US (occurrence: US)
  Receive Date: 20170909
  Receipt Date: 20170909
  Transmission Date: 20171128
  Serious: Yes (Disabling)
  Sender: FDA-Public Use
  Company Number: None

PATIENT
  Age: 63 Year
  Sex: Male
  Weight: 108 kg

DRUGS (15)
  1. ESCITALOPRAM [Suspect]
     Active Substance: ESCITALOPRAM OXALATE
     Indication: ANXIETY
     Dosage: ?          QUANTITY:1 TABLET(S);?ORAL
     Route: 048
     Dates: start: 20170526
  2. ASPIRIN. [Concomitant]
     Active Substance: ASPIRIN
  3. ROSUVASTATIN. [Concomitant]
     Active Substance: ROSUVASTATIN
  4. WELCHOL [Concomitant]
     Active Substance: COLESEVELAM HYDROCHLORIDE
  5. HUMALOG [Concomitant]
     Active Substance: INSULIN LISPRO
  6. ESCITALOPRAM [Concomitant]
     Active Substance: ESCITALOPRAM OXALATE
  7. DAPAGLIFOZIN [Concomitant]
     Active Substance: DAPAGLIFLOZIN
  8. LISINOPRIL. [Concomitant]
     Active Substance: LISINOPRIL
  9. GLIMEPIRIDE. [Concomitant]
     Active Substance: GLIMEPIRIDE
  10. IBUPROFEN. [Concomitant]
     Active Substance: IBUPROFEN
  11. ROPINIROLE. [Concomitant]
     Active Substance: ROPINIROLE
  12. AMLODIPINE BESYLATE. [Concomitant]
     Active Substance: AMLODIPINE BESYLATE
  13. VITAMIN D3 [Concomitant]
     Active Substance: CHOLECALCIFEROL
  14. MELATONIN [Concomitant]
     Active Substance: MELATONIN
  15. LANTUS [Concomitant]
     Active Substance: INSULIN GLARGINE

REACTIONS (1)
  - Anorgasmia [None]

NARRATIVE: CASE EVENT DATE: 20170601
